FAERS Safety Report 23170939 (Version 2)
Quarter: 2023Q4

REPORT INFORMATION
  Report Type: Report from Study
  Country: US (occurrence: US)
  Receive Date: 20231110
  Receipt Date: 20231123
  Transmission Date: 20240110
  Serious: Yes (Hospitalization)
  Sender: FDA-Public Use
  Company Number: US-JNJFOC-20231101557

PATIENT
  Age: 56 Year
  Sex: Female
  Weight: 79 kg

DRUGS (48)
  1. DARATUMUMAB [Suspect]
     Active Substance: DARATUMUMAB
     Indication: Plasma cell myeloma
     Dosage: FIRST REGIMEN
     Route: 058
     Dates: start: 20220802, end: 20220809
  2. DARATUMUMAB [Suspect]
     Active Substance: DARATUMUMAB
     Dosage: SECOND REGIMEN
     Route: 058
     Dates: start: 20220831, end: 20220914
  3. DARATUMUMAB [Suspect]
     Active Substance: DARATUMUMAB
     Dosage: THIRD REGIMEN
     Route: 058
     Dates: start: 20220930, end: 20220930
  4. DARATUMUMAB [Suspect]
     Active Substance: DARATUMUMAB
     Dosage: FOURTH REGIMEN
     Route: 058
     Dates: start: 20221009, end: 20221009
  5. ELRANATAMAB [Suspect]
     Active Substance: ELRANATAMAB
     Indication: Plasma cell myeloma
     Dosage: FIRST REGIMEN
     Route: 058
     Dates: start: 20220719, end: 20220719
  6. ELRANATAMAB [Suspect]
     Active Substance: ELRANATAMAB
     Dosage: SECOND REGIMEN
     Route: 058
     Dates: start: 20220722, end: 20220722
  7. ELRANATAMAB [Suspect]
     Active Substance: ELRANATAMAB
     Dosage: THIRD REGIMEN
     Route: 058
     Dates: start: 20220726, end: 20220726
  8. ELRANATAMAB [Suspect]
     Active Substance: ELRANATAMAB
     Dosage: FOURTH REGIMEN
     Route: 058
     Dates: start: 20220802, end: 20220809
  9. ELRANATAMAB [Suspect]
     Active Substance: ELRANATAMAB
     Dosage: FIFTH REGIMEN
     Route: 058
     Dates: start: 20220831, end: 20220914
  10. ELRANATAMAB [Suspect]
     Active Substance: ELRANATAMAB
     Dosage: SIXTH REGIMEN
     Route: 058
     Dates: start: 20220930, end: 20220930
  11. ELRANATAMAB [Suspect]
     Active Substance: ELRANATAMAB
     Dosage: SEVENTH REGIMEN
     Route: 058
     Dates: start: 20221009, end: 20221009
  12. DIPHENHYDRAMINE HYDROCHLORIDE [Concomitant]
     Active Substance: DIPHENHYDRAMINE HYDROCHLORIDE
     Indication: Premedication
     Dosage: FIRST REGIMEN
     Route: 048
     Dates: start: 20220719, end: 20220719
  13. DIPHENHYDRAMINE HYDROCHLORIDE [Concomitant]
     Active Substance: DIPHENHYDRAMINE HYDROCHLORIDE
     Dosage: SECOND REGIMEN
     Route: 048
     Dates: start: 20220722, end: 20220722
  14. DIPHENHYDRAMINE HYDROCHLORIDE [Concomitant]
     Active Substance: DIPHENHYDRAMINE HYDROCHLORIDE
     Dosage: THIRD REGIMEN
     Route: 048
     Dates: start: 20220726, end: 20220726
  15. DIPHENHYDRAMINE HYDROCHLORIDE [Concomitant]
     Active Substance: DIPHENHYDRAMINE HYDROCHLORIDE
     Dosage: FOURTH REGIMEN
     Route: 048
     Dates: start: 20220802, end: 20220802
  16. DIPHENHYDRAMINE HYDROCHLORIDE [Concomitant]
     Active Substance: DIPHENHYDRAMINE HYDROCHLORIDE
     Dosage: FIFTH REGIMEN
     Route: 048
     Dates: start: 20220809, end: 20220809
  17. DIPHENHYDRAMINE HYDROCHLORIDE [Concomitant]
     Active Substance: DIPHENHYDRAMINE HYDROCHLORIDE
     Dosage: SIXTH REGIMEN
     Route: 048
     Dates: start: 20220831, end: 20220831
  18. DIPHENHYDRAMINE HYDROCHLORIDE [Concomitant]
     Active Substance: DIPHENHYDRAMINE HYDROCHLORIDE
     Dosage: SEVENTH REGIMEN
     Route: 048
     Dates: start: 20220907, end: 20220907
  19. DIPHENHYDRAMINE HYDROCHLORIDE [Concomitant]
     Active Substance: DIPHENHYDRAMINE HYDROCHLORIDE
     Dosage: , EIGHTH REGIMEN
     Route: 048
     Dates: start: 20220914, end: 20220914
  20. DIPHENHYDRAMINE HYDROCHLORIDE [Concomitant]
     Active Substance: DIPHENHYDRAMINE HYDROCHLORIDE
     Dosage: NINTH REGIMEN
     Route: 048
     Dates: start: 20220930, end: 20220930
  21. DIPHENHYDRAMINE HYDROCHLORIDE [Concomitant]
     Active Substance: DIPHENHYDRAMINE HYDROCHLORIDE
     Dosage: TENTH REGIMEN
     Route: 048
     Dates: start: 20221009, end: 20221009
  22. DEXAMETHASONE [Concomitant]
     Active Substance: DEXAMETHASONE
     Indication: Premedication
     Dosage: FIRST REGIMEN
     Route: 042
     Dates: start: 20220719, end: 20220719
  23. DEXAMETHASONE [Concomitant]
     Active Substance: DEXAMETHASONE
     Dosage: SECOND REGIMEN
     Route: 042
     Dates: start: 20220722
  24. DEXAMETHASONE [Concomitant]
     Active Substance: DEXAMETHASONE
     Dosage: THIRD REGIMEN
     Route: 042
     Dates: start: 20220726, end: 20220726
  25. DEXAMETHASONE [Concomitant]
     Active Substance: DEXAMETHASONE
     Dosage: FOURTH REGIMEN
     Route: 042
     Dates: start: 20220802, end: 20220802
  26. DEXAMETHASONE [Concomitant]
     Active Substance: DEXAMETHASONE
     Dosage: FIFTH REGIMEN
     Route: 042
     Dates: start: 20220809, end: 20220809
  27. DEXAMETHASONE [Concomitant]
     Active Substance: DEXAMETHASONE
     Dosage: SIXTH REGIMEN
     Route: 042
     Dates: start: 20220831, end: 20220831
  28. DEXAMETHASONE [Concomitant]
     Active Substance: DEXAMETHASONE
     Dosage: SEVENTH REGIMEN
     Route: 042
     Dates: start: 20220907, end: 20220907
  29. DEXAMETHASONE [Concomitant]
     Active Substance: DEXAMETHASONE
     Dosage: EIGHTH REGIMEN
     Route: 042
     Dates: start: 20220914, end: 20220914
  30. DEXAMETHASONE [Concomitant]
     Active Substance: DEXAMETHASONE
     Dosage: NINTH REGIMEN
     Route: 042
     Dates: start: 20220930, end: 20220930
  31. DEXAMETHASONE [Concomitant]
     Active Substance: DEXAMETHASONE
     Dosage: TENTH REGIMEN
     Route: 042
     Dates: start: 20221009, end: 20221009
  32. ACETAMINOPHEN [Concomitant]
     Active Substance: ACETAMINOPHEN
     Indication: Premedication
     Dosage: FIRST REGIMEN
     Route: 048
     Dates: start: 20220719, end: 20220719
  33. ACETAMINOPHEN [Concomitant]
     Active Substance: ACETAMINOPHEN
     Dosage: SECOND REGIMEN
     Route: 048
     Dates: start: 20220722, end: 20220722
  34. ACETAMINOPHEN [Concomitant]
     Active Substance: ACETAMINOPHEN
     Dosage: THIRD REGIMEN
     Route: 048
     Dates: start: 20220726, end: 20220726
  35. ACETAMINOPHEN [Concomitant]
     Active Substance: ACETAMINOPHEN
     Dosage: FOURTH REGIMEN
     Route: 048
     Dates: start: 20220802, end: 20220802
  36. ACETAMINOPHEN [Concomitant]
     Active Substance: ACETAMINOPHEN
     Dosage: FIFTH REGIMEN
     Route: 048
     Dates: start: 20220809, end: 20220809
  37. ACETAMINOPHEN [Concomitant]
     Active Substance: ACETAMINOPHEN
     Dosage: SIXTH REGIMEN
     Route: 048
     Dates: start: 20220831, end: 20220831
  38. ACETAMINOPHEN [Concomitant]
     Active Substance: ACETAMINOPHEN
     Dosage: SEVENTH REGIMEN
     Route: 048
     Dates: start: 20220907
  39. ACETAMINOPHEN [Concomitant]
     Active Substance: ACETAMINOPHEN
     Dosage: EIGHTH REGIMEN
     Route: 048
     Dates: start: 20220914, end: 20220914
  40. ACETAMINOPHEN [Concomitant]
     Active Substance: ACETAMINOPHEN
     Dosage: NINTH REGIMEN
     Route: 048
     Dates: start: 20220930, end: 20220930
  41. ACETAMINOPHEN [Concomitant]
     Active Substance: ACETAMINOPHEN
     Dosage: TENTH REGIMEN
     Route: 048
     Dates: start: 20221009, end: 20221009
  42. AMBROXOL HYDROCHLORIDE [Concomitant]
     Active Substance: AMBROXOL HYDROCHLORIDE
     Indication: Productive cough
     Route: 042
     Dates: start: 20221102, end: 20221103
  43. AMBROXOL HYDROCHLORIDE [Concomitant]
     Active Substance: AMBROXOL HYDROCHLORIDE
     Route: 042
     Dates: start: 20221114, end: 20221201
  44. AMBROXOL HYDROCHLORIDE [Concomitant]
     Active Substance: AMBROXOL HYDROCHLORIDE
     Route: 048
     Dates: start: 20230106, end: 20230206
  45. AMBROXOL HYDROCHLORIDE [Concomitant]
     Active Substance: AMBROXOL HYDROCHLORIDE
     Route: 048
     Dates: start: 20230309, end: 20230311
  46. MONTELUKAST SODIUM [Concomitant]
     Active Substance: MONTELUKAST SODIUM
     Indication: Asthma
     Route: 065
  47. DYPHYLLINE [Concomitant]
     Active Substance: DYPHYLLINE
     Indication: Cough
     Route: 042
     Dates: start: 20221114, end: 20221122
  48. DYPHYLLINE [Concomitant]
     Active Substance: DYPHYLLINE
     Indication: Asthma

REACTIONS (1)
  - Pseudomonal skin infection [Recovering/Resolving]

NARRATIVE: CASE EVENT DATE: 20221012
